FAERS Safety Report 24738739 (Version 1)
Quarter: 2024Q4

REPORT INFORMATION
  Report Type: Spontaneous
  Country: US (occurrence: US)
  Receive Date: 20241216
  Receipt Date: 20241216
  Transmission Date: 20250114
  Serious: Yes (Disabling, Other)
  Sender: INCYTE
  Company Number: US-002147023-NVSC2024US235960

PATIENT

DRUGS (3)
  1. JAKAFI [Suspect]
     Active Substance: RUXOLITINIB
     Indication: Adrenoleukodystrophy
     Dosage: 10 MG, QD (RECEIVED DAILY UNTIL BEVACIZUMAB INFUSION WAS CONTINUED; 4 CYCLES)
     Route: 048
  2. BEVACIZUMAB [Suspect]
     Active Substance: BEVACIZUMAB
     Indication: Adrenoleukodystrophy
     Dosage: 10 MG/M2, Q2W (RECEIVED EVERY 2 WEEKS; 4 CYCLES), INFUSION
     Route: 042
  3. DEXAMETHASONE [Suspect]
     Active Substance: DEXAMETHASONE
     Indication: Adrenoleukodystrophy
     Dosage: 10 MG, QD (RECEIVED DAILY FOR A DURATION OF 5 DAYS?ON THE WEEK OF BEVACIZUMAB INFUSION; 4 CYCLES)
     Route: 048

REACTIONS (3)
  - Disease progression [Unknown]
  - Drug ineffective for unapproved indication [Unknown]
  - Adrenoleukodystrophy [Unknown]
